FAERS Safety Report 19717916 (Version 5)
Quarter: 2022Q1

REPORT INFORMATION
  Report Type: Report from Study
  Country: ES (occurrence: None)
  Receive Date: 20210818
  Receipt Date: 20220315
  Transmission Date: 20220423
  Serious: Yes (Hospitalization)
  Sender: FDA-Public Use
  Company Number: 2021A676471

PATIENT
  Age: 53 Year
  Sex: Female

DRUGS (10)
  1. DURVALUMAB [Suspect]
     Active Substance: DURVALUMAB
     Indication: Head and neck cancer
     Dosage: 1500 MG (CONCURRENT PHASE: DAYS -7 + 22 OR ADJUVANT PHASE: Q4 WEEKLY (6 DOSES))
     Route: 042
     Dates: start: 20210629, end: 20210727
  2. 8-CHLORTHEOPHYLLINE/PROMETHAZINE HYDROCHLORIDE/BARBITAL-AMINOPHENAZONE [Concomitant]
     Route: 065
     Dates: start: 20180426
  3. SODIUM BICARBONATE/CALCIUM/CALCIUM CARBONATE [Concomitant]
     Route: 065
     Dates: start: 20190306
  4. FENTANYL TRANSDERMAL SYSTEM [Concomitant]
     Active Substance: FENTANYL
     Route: 065
     Dates: start: 20210727
  5. LACTULOSE [Concomitant]
     Active Substance: LACTULOSE
     Route: 065
     Dates: start: 20210727
  6. ONDANSETRON [Concomitant]
     Active Substance: ONDANSETRON
     Route: 065
     Dates: start: 20210803
  7. METOCLOPRAMIDE [Concomitant]
     Active Substance: METOCLOPRAMIDE
     Route: 065
     Dates: start: 20210803
  8. TRAMADOL [Concomitant]
     Active Substance: TRAMADOL
     Route: 065
     Dates: start: 20210723
  9. ACETAMINOPHEN [Concomitant]
     Active Substance: ACETAMINOPHEN
     Route: 065
     Dates: start: 20210723
  10. LORAZEPAM [Concomitant]
     Active Substance: LORAZEPAM
     Route: 065
     Dates: start: 20210723

REACTIONS (4)
  - Stomatitis [Recovered/Resolved]
  - Immune-mediated hepatitis [Recovered/Resolved with Sequelae]
  - Alanine aminotransferase increased [Unknown]
  - Gamma-glutamyltransferase increased [Unknown]

NARRATIVE: CASE EVENT DATE: 20210810
